FAERS Safety Report 4539196-X (Version None)
Quarter: 2004Q4

REPORT INFORMATION
  Report Type: 
  Country: None (occurrence: None)
  Receive Date: 20041227
  Receipt Date: 20041227
  Transmission Date: 20050328
  Serious: Yes (Hospitalization)
  Sender: FDA-Public Use
  Company Number: None

PATIENT
  Sex: Female
  Weight: 68.0396 kg

DRUGS (7)
  1. FLUOROURACIL [Suspect]
     Indication: COLON CANCER
     Dosage: 1000MG CI QOW  INTRAVENOUS
     Route: 042
     Dates: start: 20040922, end: 20041208
  2. ELOXATIN [Concomitant]
  3. LEUCOVORIN [Concomitant]
  4. AVASTIN [Concomitant]
  5. KYTRIL [Concomitant]
  6. DECADRON [Concomitant]
  7. ALOXI [Concomitant]

REACTIONS (4)
  - ABDOMINAL PAIN [None]
  - DIAPHRAGMATIC DISORDER [None]
  - DIARRHOEA [None]
  - FLATULENCE [None]
